FAERS Safety Report 24428013 (Version 1)
Quarter: 2024Q4

REPORT INFORMATION
  Report Type: Spontaneous
  Country: US (occurrence: US)
  Receive Date: 20241011
  Receipt Date: 20241011
  Transmission Date: 20250115
  Serious: Yes (Hospitalization, Other)
  Sender: TEVA
  Company Number: US-TEVA-VS-3251608

PATIENT
  Age: 64 Year
  Sex: Male

DRUGS (3)
  1. GABAPENTIN [Suspect]
     Active Substance: GABAPENTIN
     Indication: Product used for unknown indication
     Route: 065
  2. DUPILUMAB [Suspect]
     Active Substance: DUPILUMAB
     Indication: Dermatitis atopic
     Dosage: LOADING DOSE OF 600 MG 1X FOLLOWED BY MAINTENANCE DOSE OF 300 MG  QOW
     Route: 065
  3. DUPILUMAB [Suspect]
     Active Substance: DUPILUMAB
     Indication: Dermatitis atopic
     Route: 065

REACTIONS (6)
  - Tremor [Not Recovered/Not Resolved]
  - Lower limb fracture [Unknown]
  - Renal disorder [Unknown]
  - Dysstasia [Unknown]
  - Gait inability [Unknown]
  - Fall [Unknown]

NARRATIVE: CASE EVENT DATE: 20230901
